FAERS Safety Report 16664362 (Version 2)
Quarter: 2019Q3

REPORT INFORMATION
  Report Type: Report from Study
  Country: US (occurrence: US)
  Receive Date: 20190802
  Receipt Date: 20190830
  Transmission Date: 20191004
  Serious: Yes (Death, Life-Threatening, Hospitalization, Other)
  Sender: FDA-Public Use
  Company Number: US-EXELIXIS-XL18419022478

PATIENT
  Age: 69 Year
  Sex: Male
  Weight: 68.9 kg

DRUGS (21)
  1. METRONIDAZOLE. [Concomitant]
     Active Substance: METRONIDAZOLE
  2. MOMETASONE [Concomitant]
     Active Substance: MOMETASONE
  3. XL184 [Suspect]
     Active Substance: CABOZANTINIB
     Indication: TRANSITIONAL CELL CARCINOMA
     Dosage: 40 MG, QD
     Route: 048
     Dates: start: 20190523, end: 20190627
  4. GEMCITABINE. [Suspect]
     Active Substance: GEMCITABINE
     Indication: TRANSITIONAL CELL CARCINOMA
  5. ALPRAZOLAM. [Concomitant]
     Active Substance: ALPRAZOLAM
  6. DOCUSATE SODIUM. [Concomitant]
     Active Substance: DOCUSATE SODIUM
  7. ONDASETRON [Concomitant]
     Active Substance: ONDANSETRON
  8. IPILIMUMAB [Suspect]
     Active Substance: IPILIMUMAB
     Indication: TRANSITIONAL CELL CARCINOMA
     Dosage: 1 MG/KG ON DAY 1
     Route: 042
     Dates: start: 20190523, end: 20190612
  9. PROCHLORPERAZINE. [Concomitant]
     Active Substance: PROCHLORPERAZINE
  10. CISPLATIN. [Suspect]
     Active Substance: CISPLATIN
     Indication: TRANSITIONAL CELL CARCINOMA
  11. ASPIRIN. [Concomitant]
     Active Substance: ASPIRIN
  12. GABAPENTIN. [Concomitant]
     Active Substance: GABAPENTIN
  13. STOMATITIS COCKTAIL [Concomitant]
  14. TRAMADOL. [Concomitant]
     Active Substance: TRAMADOL
  15. NIVOLUMAB [Suspect]
     Active Substance: NIVOLUMAB
     Indication: TRANSITIONAL CELL CARCINOMA
     Dosage: 3 MG/KG ON DAY 1
     Route: 042
     Dates: start: 20190523, end: 20190612
  16. DEXAMETHASONE. [Concomitant]
     Active Substance: DEXAMETHASONE
  17. PREDNISONE. [Concomitant]
     Active Substance: PREDNISONE
  18. LIDOCAINE. [Concomitant]
     Active Substance: LIDOCAINE
  19. ATORVASTATIN [Concomitant]
     Active Substance: ATORVASTATIN
  20. FUROSEMIDE. [Concomitant]
     Active Substance: FUROSEMIDE
  21. FLUCONAZOLE. [Concomitant]
     Active Substance: FLUCONAZOLE

REACTIONS (24)
  - Blood alkaline phosphatase increased [Unknown]
  - Blood bilirubin increased [Unknown]
  - Muscular weakness [Unknown]
  - Lymphocyte count decreased [Unknown]
  - Neutrophil count decreased [Unknown]
  - Vomiting [Unknown]
  - Pulmonary oedema [Unknown]
  - Prothrombin time prolonged [Unknown]
  - Hypermagnesaemia [Unknown]
  - White blood cell count decreased [Unknown]
  - Sepsis [Unknown]
  - Acidosis [Unknown]
  - Hyperglycaemia [Unknown]
  - Multiple organ dysfunction syndrome [Fatal]
  - Aspartate aminotransferase increased [Unknown]
  - Hypoalbuminaemia [Unknown]
  - Pleural effusion [Unknown]
  - Acute respiratory distress syndrome [Unknown]
  - Blood urea increased [Unknown]
  - Alanine aminotransferase increased [Unknown]
  - Pneumonitis [Unknown]
  - Small intestinal obstruction [Unknown]
  - Chronic kidney disease [Unknown]
  - Nausea [Unknown]

NARRATIVE: CASE EVENT DATE: 20190610
